FAERS Safety Report 6614664-5 (Version None)
Quarter: 2010Q1

REPORT INFORMATION
  Report Type: 
  Country: None (occurrence: None)
  Receive Date: 20100226
  Receipt Date: 20100211
  Transmission Date: 20100710
  Serious: Yes (Hospitalization)
  Sender: FDA-Public Use
  Company Number: 2010000531

PATIENT
  Age: 71 Year
  Sex: Female

DRUGS (2)
  1. ERLOTINIB(ERLOTINIB) (TABLET) (ERLOTINIB) [Suspect]
     Indication: PANCREATIC CARCINOMA
     Dosage: (150 MG,QD), ORAL
     Route: 048
     Dates: start: 20080827
  2. GEMCITABINE [Suspect]
     Indication: PANCREATIC CARCINOMA
     Dosage: (1000 MG/M2, 3X PER 4 WEEKS), INTRVENOUS
     Route: 042
     Dates: start: 20080827

REACTIONS (1)
  - BRONCHOSPASM [None]
